FAERS Safety Report 11733939 (Version 3)
Quarter: 2016Q4

REPORT INFORMATION
  Report Type: Spontaneous
  Country: FR (occurrence: FR)
  Receive Date: 20151113
  Receipt Date: 20161006
  Transmission Date: 20170206
  Serious: Yes (Death, Hospitalization, Other)
  Sender: FDA-Public Use
  Company Number: FR-ACTELION-A-CH2015-126712

PATIENT
  Age: 56 Year
  Sex: Male

DRUGS (17)
  1. LEVOTHYROX [Concomitant]
     Active Substance: LEVOTHYROXINE
     Dosage: 150 ?G, OD
     Dates: start: 201503
  2. CONTRAMAL [Concomitant]
     Active Substance: TRAMADOL HYDROCHLORIDE
     Dosage: 100 MG, BID
  3. FOLIC ACID. [Concomitant]
     Active Substance: FOLIC ACID
     Dosage: 0.4 MG, OD
  4. ALDACTONE [Concomitant]
     Active Substance: SPIRONOLACTONE
     Dosage: 50 MG, UNK
     Dates: start: 201503
  5. ALPRAZOLAM. [Concomitant]
     Active Substance: ALPRAZOLAM
     Dosage: 50 MG, BID
  6. DIFFU K [Concomitant]
     Active Substance: POTASSIUM CHLORIDE
     Dosage: 600 MG, OD
  7. TRACLEER [Suspect]
     Active Substance: BOSENTAN
     Indication: PULMONARY ARTERIAL HYPERTENSION
     Dosage: 125 MG, BID
     Route: 048
     Dates: start: 20150909, end: 20151101
  8. TRACLEER [Suspect]
     Active Substance: BOSENTAN
     Dosage: 62.5 MG, BID
     Route: 048
     Dates: start: 20150729
  9. LASILIX [Concomitant]
     Active Substance: FUROSEMIDE
     Dosage: 1250 MG, QD
     Route: 048
     Dates: start: 20160916
  10. STILNOX [Concomitant]
     Active Substance: ZOLPIDEM TARTRATE
     Dosage: 10 MG, UNK
  11. TRACLEER [Suspect]
     Active Substance: BOSENTAN
     Dosage: 32 MG, BID
     Route: 048
     Dates: start: 20150630
  12. ADCIRCA [Concomitant]
     Active Substance: TADALAFIL
     Indication: PULMONARY ARTERIAL HYPERTENSION
     Dosage: 20 MG, UNK
     Route: 065
     Dates: start: 20150826, end: 20151101
  13. LASILIX [Concomitant]
     Active Substance: FUROSEMIDE
     Dosage: 50 MG, TID
     Dates: start: 201503
  14. PERINDOPRIL [Concomitant]
     Active Substance: PERINDOPRIL
     Dosage: 4 MG, UNK
     Dates: start: 201503
  15. CONTRAMAL [Concomitant]
     Active Substance: TRAMADOL HYDROCHLORIDE
     Dosage: 50 MG, PRN
  16. XGEVA [Concomitant]
     Active Substance: DENOSUMAB
  17. CACIT VITAMINE D3 [Concomitant]
     Active Substance: CALCIUM CARBONATE\CHOLECALCIFEROL

REACTIONS (10)
  - Small cell lung cancer [Fatal]
  - Concomitant disease progression [Fatal]
  - Pulmonary arterial hypertension [Fatal]
  - Concomitant disease aggravated [Unknown]
  - Hallucination, visual [Unknown]
  - Headache [Unknown]
  - Metastases to bone [Fatal]
  - Visual acuity reduced [Unknown]
  - Vision blurred [Unknown]
  - Optic nerve injury [Unknown]

NARRATIVE: CASE EVENT DATE: 201507
